FAERS Safety Report 17649058 (Version 3)
Quarter: 2020Q4

REPORT INFORMATION
  Report Type: Spontaneous
  Country: JP (occurrence: JP)
  Receive Date: 20200409
  Receipt Date: 20201029
  Transmission Date: 20210113
  Serious: Yes (Other)
  Sender: FDA-Public Use
  Company Number: NVSJ2020JP004030

PATIENT
  Age: 55 Year
  Sex: Male

DRUGS (3)
  1. TAFINLAR [Suspect]
     Active Substance: DABRAFENIB MESYLATE
     Indication: NON-SMALL CELL LUNG CANCER RECURRENT
     Dosage: 300 MG
     Route: 048
  2. TAFINLAR [Suspect]
     Active Substance: DABRAFENIB MESYLATE
     Dosage: 200 MG
     Route: 048
  3. MEKINIST [Suspect]
     Active Substance: TRAMETINIB DIMETHYL SULFOXIDE
     Indication: NON-SMALL CELL LUNG CANCER RECURRENT
     Dosage: 2 MG
     Route: 048

REACTIONS (8)
  - Pyrexia [Unknown]
  - Dermatitis acneiform [Recovering/Resolving]
  - Cardiac disorder [Unknown]
  - Therapy non-responder [Unknown]
  - Pericardial effusion [Unknown]
  - Hepatic enzyme increased [Recovering/Resolving]
  - Ejection fraction decreased [Unknown]
  - Nausea [Recovered/Resolved]
